FAERS Safety Report 24539136 (Version 1)
Quarter: 2024Q4

REPORT INFORMATION
  Report Type: Spontaneous
  Country: IE (occurrence: IE)
  Receive Date: 20241023
  Receipt Date: 20241023
  Transmission Date: 20250115
  Serious: Yes (Other)
  Sender: MYLAN
  Company Number: IE-TAKEDA-2024TUS099794

PATIENT
  Age: 50 Year

DRUGS (4)
  1. DOXORUBICIN [Suspect]
     Active Substance: DOXORUBICIN
     Indication: Neoplasm malignant
     Dosage: UNK
     Route: 065
  2. PREDNISOLONE [Suspect]
     Active Substance: PREDNISOLONE
     Indication: Neoplasm malignant
     Dosage: UNK
     Route: 065
  3. BRENTUXIMAB VEDOTIN [Suspect]
     Active Substance: BRENTUXIMAB VEDOTIN
     Indication: Neoplasm malignant
     Dosage: UNK
     Route: 065
  4. CYCLOPHOSPHAMIDE [Suspect]
     Active Substance: CYCLOPHOSPHAMIDE
     Indication: Neoplasm malignant
     Dosage: UNK
     Route: 065

REACTIONS (2)
  - Septic shock [Unknown]
  - Off label use [Unknown]
